FAERS Safety Report 21629246 (Version 1)
Quarter: 2022Q4

REPORT INFORMATION
  Report Type: Spontaneous
  Country: US (occurrence: US)
  Receive Date: 20221122
  Receipt Date: 20221122
  Transmission Date: 20230113
  Serious: Yes (Other)
  Sender: FDA-Public Use
  Company Number: US-PARI RESPIRATORY EQUIPMENT, INC.-2022PAR00070

PATIENT
  Age: 10 Year
  Sex: Female
  Weight: 56.689 kg

DRUGS (10)
  1. KITABIS PAK [Suspect]
     Active Substance: TOBRAMYCIN
     Indication: Cystic fibrosis
     Dosage: 1 AMPULE (300 MG) VIA NEBULIZER, 2X/DAY ALTERNATING 28 DAYS ON 28 DAYS OFF
  2. PULMOZYME [Concomitant]
     Active Substance: DORNASE ALFA
  3. AMOXICILLIN [Concomitant]
     Active Substance: AMOXICILLIN
  4. ALBUTEROL SULFATE [Concomitant]
     Active Substance: ALBUTEROL SULFATE
  5. FLOVENT HFA [Concomitant]
     Active Substance: FLUTICASONE PROPIONATE
  6. AZITHROMYCIN [Concomitant]
     Active Substance: AZITHROMYCIN
  7. VITAMIN D NOS [Concomitant]
     Active Substance: VITAMIN D NOS
  8. VITAMINS [Concomitant]
     Active Substance: VITAMINS
  9. CREON [Concomitant]
     Active Substance: PANCRELIPASE AMYLASE\PANCRELIPASE LIPASE\PANCRELIPASE PROTEASE
  10. UNSPECIFIED ANTIBITOICS [Concomitant]

REACTIONS (1)
  - Pseudomonas infection [Unknown]

NARRATIVE: CASE EVENT DATE: 20221001
